FAERS Safety Report 4884834-5 (Version None)
Quarter: 2006Q1

REPORT INFORMATION
  Report Type: 
  Country: None (occurrence: None)
  Receive Date: 20060119
  Receipt Date: 20060113
  Transmission Date: 20060701
  Serious: Yes (Hospitalization)
  Sender: FDA-Public Use
  Company Number: US-GLAXOSMITHKLINE-A0589236A

PATIENT
  Sex: Male

DRUGS (2)
  1. AUGMENTIN '125' [Suspect]
     Indication: EYE INFECTION
     Dosage: 1000MG TWICE PER DAY
     Route: 048
  2. UNKNOWN [Concomitant]

REACTIONS (3)
  - ADVERSE EVENT [None]
  - DYSSTASIA [None]
  - VERTIGO [None]
